FAERS Safety Report 8584178-4 (Version None)
Quarter: 2012Q3

REPORT INFORMATION
  Report Type: 
  Country: None (occurrence: None)
  Receive Date: 20120810
  Receipt Date: 20120802
  Transmission Date: 20120928
  Serious: Yes (Hospitalization, Other)
  Sender: FDA-Public Use
  Company Number: GB-AMGEN-GBRCT2012049370

PATIENT
  Age: 57 Year
  Sex: Female

DRUGS (21)
  1. RAMIPRIL [Concomitant]
     Dosage: UNK UNK, UNK
  2. GABAPENTIN [Concomitant]
     Dosage: UNK
     Dates: start: 20120627
  3. ASPIRIN [Concomitant]
     Dosage: UNK UNK, UNK
  4. METFORMIN HYDROCHLORIDE [Concomitant]
     Dosage: UNK
     Dates: start: 20110117
  5. PIOGLITAZONE [Concomitant]
     Dosage: UNK
     Dates: start: 20110117
  6. MORPHINE [Concomitant]
     Dosage: UNK UNK, UNK
  7. FERROUS SULFATE TAB [Concomitant]
     Dosage: UNK
     Dates: start: 20110117
  8. VERAPAMIL [Concomitant]
     Dosage: UNK UNK, UNK
  9. SULFASALAZINE [Concomitant]
     Dosage: UNK
     Dates: start: 20110117
  10. FOLIC ACID [Concomitant]
     Dosage: UNK
     Dates: start: 20110117
  11. MEBEVERINE [Concomitant]
     Dosage: UNK
     Dates: start: 20110117
  12. OMEPRAZOLE [Concomitant]
     Dosage: UNK
     Dates: start: 20110117
  13. SYMBICORT [Concomitant]
     Dosage: UNK
     Dates: start: 20110117
  14. DIAZEPAM [Concomitant]
     Dosage: UNK
     Dates: start: 20120627
  15. ETANERCEPT [Suspect]
     Indication: PSORIATIC ARTHROPATHY
     Dosage: 50 MG, QWK
     Dates: start: 20110315, end: 20120224
  16. ALBUTEROL SULATE [Concomitant]
     Dosage: UNK
     Dates: start: 20110117
  17. FUROSEMIDE [Concomitant]
     Dosage: UNK UNK, UNK
  18. MONTELUKAST [Concomitant]
     Dosage: UNK UNK, UNK
  19. NICORANDIL [Concomitant]
     Dosage: UNK
     Dates: start: 20110801
  20. ATORVASTATIN [Concomitant]
     Dosage: UNK
     Dates: start: 20110117
  21. ISOSORBIDE MONONITRATE [Concomitant]
     Dosage: UNK UNK, UNK

REACTIONS (1)
  - PSORIASIS [None]
